FAERS Safety Report 11864554 (Version 1)
Quarter: 2015Q4

REPORT INFORMATION
  Report Type: Spontaneous
  Country: US (occurrence: US)
  Receive Date: 20151223
  Receipt Date: 20151223
  Transmission Date: 20160305
  Serious: No
  Sender: FDA-Public Use
  Company Number: US-RISING PHARMACEUTICALS, INC.-2015RIS00070

PATIENT
  Sex: Female

DRUGS (8)
  1. ANTIHISTAMINES (UNSPECIFIED) [Concomitant]
  2. IGG [Concomitant]
     Active Substance: HUMAN IMMUNOGLOBULIN G
     Route: 042
  3. ADDITIONAL DIETARY SUPPLEMENTS (UNSPECIFIED) [Concomitant]
  4. CROMOLYN SODIUM ORAL SOLUTION [Suspect]
     Active Substance: CROMOLYN SODIUM
     Indication: MAST CELL ACTIVATION SYNDROME
  5. CROMOLYN SODIUM ORAL SOLUTION [Suspect]
     Active Substance: CROMOLYN SODIUM
     Indication: AUTOIMMUNE DISORDER
  6. THYROID MEDICATIONS (UNSPECIFIED) [Concomitant]
  7. ASPIRIN. [Concomitant]
     Active Substance: ASPIRIN
  8. PROBIOTIC (UNSPECIFIED) [Concomitant]

REACTIONS (3)
  - Decreased appetite [Unknown]
  - Malaise [Unknown]
  - Sinusitis [Unknown]
